FAERS Safety Report 9174529 (Version 1)
Quarter: 2013Q1

REPORT INFORMATION
  Report Type: Spontaneous
  Country: US (occurrence: US)
  Receive Date: 20130320
  Receipt Date: 20130320
  Transmission Date: 20140127
  Serious: No
  Sender: FDA-Public Use
  Company Number: US-MYLANLABS-2012S1019454

PATIENT
  Sex: Female

DRUGS (3)
  1. ESTRADIOL TRANSDERMAL SYSTEM, USP [Suspect]
     Indication: HORMONE REPLACEMENT THERAPY
     Dosage: Q WEEK
     Route: 062
     Dates: start: 2003, end: 201205
  2. ESTRADIOL TRANSDERMAL SYSTEM, USP [Suspect]
     Indication: HORMONE REPLACEMENT THERAPY
     Dosage: Q WEEK
     Route: 062
     Dates: start: 201205, end: 20120907
  3. ESTRADIOL TRANSDERMAL SYSTEM, USP [Suspect]
     Indication: HORMONE REPLACEMENT THERAPY
     Dosage: Q WEEK
     Route: 062
     Dates: start: 20120907

REACTIONS (3)
  - Lymphoedema [Recovering/Resolving]
  - Local swelling [Recovering/Resolving]
  - Reaction to drug excipients [Recovering/Resolving]
